FAERS Safety Report 5397450-6 (Version None)
Quarter: 2007Q3

REPORT INFORMATION
  Report Type: 
  Country: None (occurrence: None)
  Receive Date: 20070726
  Receipt Date: 20070724
  Transmission Date: 20080115
  Serious: Yes (Death)
  Sender: FDA-Public Use
  Company Number: DE-BAYER-200712613GDS

PATIENT
  Sex: Male

DRUGS (1)
  1. ACTIMAX [Suspect]
     Indication: BRONCHOPNEUMONIA
     Dosage: TOTAL DAILY DOSE: 400 MG  UNIT DOSE: 400 MG
     Route: 048
     Dates: start: 20061101, end: 20061101

REACTIONS (1)
  - SUDDEN CARDIAC DEATH [None]
